FAERS Safety Report 5153699-9 (Version None)
Quarter: 2006Q4

REPORT INFORMATION
  Report Type: 
  Country: None (occurrence: None)
  Receive Date: 20061114
  Receipt Date: 20061101
  Transmission Date: 20070319
  Serious: Yes (Other)
  Sender: FDA-Public Use
  Company Number: AND_0480_2006

PATIENT
  Age: 65 Year
  Sex: Male

DRUGS (2)
  1. METFORMIN [Suspect]
     Indication: DIABETES MELLITUS NON-INSULIN-DEPENDENT
     Dosage: DF PO
     Route: 048
  2. STATIN (UNIDENTIFIED) [Concomitant]

REACTIONS (4)
  - CHOKING SENSATION [None]
  - COUGH [None]
  - RASH [None]
  - WHEEZING [None]
